FAERS Safety Report 22845508 (Version 8)
Quarter: 2024Q1

REPORT INFORMATION
  Report Type: Spontaneous
  Country: US (occurrence: US)
  Receive Date: 20230821
  Receipt Date: 20240320
  Transmission Date: 20240410
  Serious: Yes (Other)
  Sender: FDA-Public Use
  Company Number: US-PFIZER INC-PV202300142593

PATIENT
  Age: 76 Year
  Sex: Female
  Weight: 54.43 kg

DRUGS (6)
  1. RETACRIT [Suspect]
     Active Substance: EPOETIN ALFA-EPBX
     Indication: Nephrogenic anaemia
     Dosage: 10000 IU
  2. RETACRIT [Suspect]
     Active Substance: EPOETIN ALFA-EPBX
     Indication: Anaemia
     Dosage: 20000 IU
  3. RETACRIT [Suspect]
     Active Substance: EPOETIN ALFA-EPBX
     Indication: Chronic kidney disease
     Dosage: 20000 IU (EVERY 28 DAYS/20,000 UNITS ON DAYS 1, 8, 15, 22)
     Route: 058
  4. RETACRIT [Suspect]
     Active Substance: EPOETIN ALFA-EPBX
     Dosage: 10000 IU (1 TIME ON DAYS 1,8,15,22)
     Route: 058
     Dates: start: 20231130
  5. RETACRIT [Suspect]
     Active Substance: EPOETIN ALFA-EPBX
  6. IRON [Concomitant]
     Active Substance: IRON
     Dosage: UNK

REACTIONS (4)
  - Chronic kidney disease [Not Recovered/Not Resolved]
  - Hypoacusis [Unknown]
  - Product dose omission issue [Unknown]
  - Off label use [Unknown]
